FAERS Safety Report 5165195-3 (Version None)
Quarter: 2006Q4

REPORT INFORMATION
  Report Type: 
  Country: None (occurrence: None)
  Receive Date: 20061124
  Receipt Date: 20061114
  Transmission Date: 20070319
  Serious: Yes (Disabling)
  Sender: FDA-Public Use
  Company Number: 2006140945

PATIENT
  Age: 60 Year
  Sex: Female
  Weight: 102 kg

DRUGS (4)
  1. EPIRUBICIN [Suspect]
     Dosage: (200 MG, 1 IN 1 D), INTRAVENOUS
     Route: 042
     Dates: start: 20061002
  2. NEULASTA [Suspect]
     Dosage: (6 MG), SUBCUTANEOUS
     Route: 058
     Dates: start: 20061003
  3. SALBUTAMOL (SALBUTAMOL) [Concomitant]
  4. ONDANSETRON HCL [Concomitant]

REACTIONS (3)
  - BEDRIDDEN [None]
  - HEADACHE [None]
  - PHOTOPSIA [None]
